FAERS Safety Report 16854321 (Version 2)
Quarter: 2022Q1

REPORT INFORMATION
  Report Type: Spontaneous
  Country: PL (occurrence: PL)
  Receive Date: 20190926
  Receipt Date: 20220317
  Transmission Date: 20220423
  Serious: Yes (Other)
  Sender: FDA-Public Use
  Company Number: PL-AUROBINDO-AUR-APL-2019-060642

PATIENT
  Age: 67 Year
  Sex: Male

DRUGS (4)
  1. ALPRAZOLAM [Suspect]
     Active Substance: ALPRAZOLAM
     Indication: Anxiety disorder
     Dosage: UNK, INITIAL DOSAGE NOT STATED; LATER, IT WAS INCREASED TO 1.5-2 MG/DAILY.
     Route: 065
  2. ALPRAZOLAM [Suspect]
     Active Substance: ALPRAZOLAM
     Indication: Mixed anxiety and depressive disorder
  3. CLORAZEPIC ACID [Suspect]
     Active Substance: CLORAZEPIC ACID
     Indication: Mixed anxiety and depressive disorder
     Dosage: UNK
     Route: 065
  4. CLORAZEPIC ACID [Suspect]
     Active Substance: CLORAZEPIC ACID
     Indication: Anxiety disorder

REACTIONS (2)
  - Drug dependence [Recovered/Resolved]
  - Drug tolerance [Recovered/Resolved]
